FAERS Safety Report 8269898-3 (Version None)
Quarter: 2012Q2

REPORT INFORMATION
  Report Type: 
  Country: None (occurrence: None)
  Receive Date: 20120410
  Receipt Date: 20120405
  Transmission Date: 20120825
  Serious: No
  Sender: FDA-Public Use
  Company Number: US-PFIZER INC-2012086749

PATIENT
  Sex: Male

DRUGS (1)
  1. IBUPROFEN (ADVIL) [Suspect]
     Indication: JOINT INJURY
     Dosage: UNK
     Dates: start: 20120404

REACTIONS (6)
  - FEELING ABNORMAL [None]
  - MALAISE [None]
  - HYPERSENSITIVITY [None]
  - THROAT TIGHTNESS [None]
  - WHEEZING [None]
  - DYSPNOEA [None]
